FAERS Safety Report 21625246 (Version 3)
Quarter: 2022Q4

REPORT INFORMATION
  Report Type: Spontaneous
  Country: US (occurrence: US)
  Receive Date: 20221122
  Receipt Date: 20221220
  Transmission Date: 20230113
  Serious: Yes (Other)
  Sender: FDA-Public Use
  Company Number: US-SUN PHARMACEUTICAL INDUSTRIES LTD-2022R1-364234

PATIENT
  Age: 30 Year
  Sex: Male

DRUGS (1)
  1. TESTOSTERONE [Suspect]
     Active Substance: TESTOSTERONE
     Indication: Transgender hormonal therapy
     Dosage: UNK, ONCE WEEKLY
     Route: 065
     Dates: start: 20190719, end: 20220610

REACTIONS (11)
  - Immunodeficiency [Recovered/Resolved]
  - Skin lesion [Unknown]
  - Suicidal behaviour [Recovered/Resolved]
  - Depression [Recovered/Resolved]
  - Fatigue [Recovering/Resolving]
  - Illness [Recovered/Resolved]
  - Rash [Recovered/Resolved]
  - Recalled product [Unknown]
  - Recalled product administered [Unknown]
  - Stress [Recovered/Resolved]
  - Therapy cessation [Unknown]

NARRATIVE: CASE EVENT DATE: 20211201
